FAERS Safety Report 11827439 (Version 1)
Quarter: 2015Q4

REPORT INFORMATION
  Report Type: Spontaneous
  Country: FR (occurrence: FR)
  Receive Date: 20151211
  Receipt Date: 20151211
  Transmission Date: 20160305
  Serious: Yes (Other)
  Sender: FDA-Public Use
  Company Number: FR-JNJFOC-20151207275

PATIENT
  Age: 46 Year
  Sex: Male

DRUGS (5)
  1. ATARAX [Concomitant]
     Active Substance: HYDROXYZINE\HYDROXYZINE HYDROCHLORIDE
     Indication: ANXIETY
     Route: 065
  2. LEXOMIL [Suspect]
     Active Substance: BROMAZEPAM
     Indication: ANXIETY
     Dosage: DOSE 13X ?
     Route: 065
     Dates: start: 20150220
  3. MIANSERIN [Concomitant]
     Active Substance: MIANSERIN
     Route: 065
  4. TIVICAY [Suspect]
     Active Substance: DOLUTEGRAVIR SODIUM
     Indication: ACQUIRED IMMUNODEFICIENCY SYNDROME
     Route: 048
     Dates: start: 20151118
  5. EDURANT [Suspect]
     Active Substance: RILPIVIRINE HYDROCHLORIDE
     Indication: ACQUIRED IMMUNODEFICIENCY SYNDROME
     Route: 048
     Dates: start: 20141118

REACTIONS (2)
  - Off label use [Unknown]
  - Suicide attempt [Recovered/Resolved]

NARRATIVE: CASE EVENT DATE: 20150220
